FAERS Safety Report 20417620 (Version 1)
Quarter: 2022Q1

REPORT INFORMATION
  Report Type: Spontaneous
  Country: FR (occurrence: None)
  Receive Date: 20220202
  Receipt Date: 20220202
  Transmission Date: 20220423
  Serious: Yes (Other)
  Sender: FDA-Public Use
  Company Number: 2022A040476

PATIENT
  Age: 69 Year
  Sex: Female

DRUGS (1)
  1. BUDESONIDE [Suspect]
     Active Substance: BUDESONIDE
     Indication: Asthma
     Dosage: 400UG/INHAL DAILY
     Route: 055
     Dates: start: 20211112

REACTIONS (3)
  - Aphasia [Unknown]
  - Cough [Unknown]
  - Obstruction [Unknown]

NARRATIVE: CASE EVENT DATE: 20211112
